FAERS Safety Report 7819705-5 (Version None)
Quarter: 2011Q4

REPORT INFORMATION
  Report Type: 
  Country: None (occurrence: None)
  Receive Date: 20111018
  Receipt Date: 20110719
  Transmission Date: 20120403
  Serious: No
  Sender: FDA-Public Use
  Company Number: US-ASTRAZENECA-2011SE43128

PATIENT
  Age: 69 Year
  Sex: Male

DRUGS (3)
  1. SYMBICORT [Suspect]
     Indication: CHRONIC OBSTRUCTIVE PULMONARY DISEASE
     Dosage: 2 PUFFS TWO TIMES A DAY
     Route: 055
  2. SYMBICORT [Suspect]
     Indication: SINUS DISORDER
     Dosage: 2 PUFFS TWO TIMES A DAY
     Route: 055
  3. SYMBICORT [Suspect]
     Indication: COUGH
     Dosage: 2 PUFFS TWO TIMES A DAY
     Route: 055

REACTIONS (2)
  - OFF LABEL USE [None]
  - DYSPHONIA [None]
